FAERS Safety Report 16128374 (Version 2)
Quarter: 2019Q3

REPORT INFORMATION
  Report Type: Spontaneous
  Country: JP (occurrence: JP)
  Receive Date: 20190328
  Receipt Date: 20190703
  Transmission Date: 20191004
  Serious: Yes (Death, Other)
  Sender: FDA-Public Use
  Company Number: JP-BAYER-2019-055061

PATIENT
  Age: 72 Year
  Sex: Male
  Weight: 61 kg

DRUGS (12)
  1. XOFIGO [Suspect]
     Active Substance: RADIUM RA-223 DICHLORIDE
     Indication: PROSTATE CANCER METASTATIC
     Dosage: 55KBQ/KG, ONCE
     Route: 042
     Dates: start: 20181211, end: 20181211
  2. LANSOPRAZOLE. [Concomitant]
     Active Substance: LANSOPRAZOLE
     Indication: GASTROOESOPHAGEAL REFLUX DISEASE
     Dosage: DAILY DOSE 15MG
     Route: 048
  3. DEXAMETHASONE. [Concomitant]
     Active Substance: DEXAMETHASONE
     Indication: PROSTATE CANCER
     Dosage: DAILY DOSE .5 MG
     Route: 048
  4. NOVAMIN [AMIKACIN SULFATE] [Concomitant]
     Dosage: DAILY DOSE 15 MG
     Route: 048
     Dates: start: 20190307
  5. ZOLEDRONIC [Concomitant]
     Active Substance: ZOLEDRONIC ACID
     Indication: METASTASES TO BONE
     Dosage: DAILY DOSE 4MG
     Route: 042
  6. MAGNESIUM OXIDE. [Concomitant]
     Active Substance: MAGNESIUM OXIDE
     Indication: CONSTIPATION
     Route: 048
  7. OXYCODONE [Concomitant]
     Active Substance: OXYCODONE
     Indication: PAIN
     Dosage: DAILY DOSE 10 MG
     Route: 048
     Dates: start: 20190307
  8. OXINORM [ORGOTEIN] [Concomitant]
     Dosage: DAILY DOSE 2.5 MG
     Route: 048
     Dates: start: 20190307
  9. XOFIGO [Suspect]
     Active Substance: RADIUM RA-223 DICHLORIDE
     Indication: PROSTATE CANCER METASTATIC
     Dosage: 55KBQ/KG, ONCE
     Route: 042
     Dates: start: 20190205, end: 20190205
  10. XOFIGO [Suspect]
     Active Substance: RADIUM RA-223 DICHLORIDE
     Indication: METASTASES TO BONE
     Dosage: 55KBQ/KG, ONCE
     Route: 042
     Dates: start: 20190108, end: 20190108
  11. ENZALUTAMIDE [Concomitant]
     Active Substance: ENZALUTAMIDE
  12. LOXOPROFEN [Concomitant]
     Active Substance: LOXOPROFEN
     Indication: PAIN
     Route: 048

REACTIONS (7)
  - White blood cell count decreased [Fatal]
  - Haemoglobin decreased [Fatal]
  - Haemoptysis [Fatal]
  - Platelet count decreased [Fatal]
  - Dysphonia [Fatal]
  - Anaemia [Fatal]
  - Back pain [Unknown]

NARRATIVE: CASE EVENT DATE: 20190122
